FAERS Safety Report 18790158 (Version 1)
Quarter: 2021Q1

REPORT INFORMATION
  Report Type: Spontaneous
  Country: US (occurrence: US)
  Receive Date: 20210126
  Receipt Date: 20210126
  Transmission Date: 20210419
  Serious: Yes (Hospitalization, Other)
  Sender: FDA-Public Use
  Company Number: US-009507513-2101USA010091

PATIENT
  Sex: Male

DRUGS (1)
  1. KEYTRUDA [Suspect]
     Active Substance: PEMBROLIZUMAB

REACTIONS (12)
  - Throat cancer [Unknown]
  - Myocardial infarction [Unknown]
  - Chest pain [Recovered/Resolved]
  - Feeling abnormal [Unknown]
  - Haemorrhage [Unknown]
  - Lung disorder [Unknown]
  - Pneumothorax [Unknown]
  - Chest pain [Not Recovered/Not Resolved]
  - Respiratory moniliasis [Unknown]
  - Paraesthesia [Unknown]
  - Exposure to radiation [Unknown]
  - Cough [Unknown]

NARRATIVE: CASE EVENT DATE: 202003
